FAERS Safety Report 9631082 (Version 1)
Quarter: 2013Q4

REPORT INFORMATION
  Report Type: Spontaneous
  Country: US (occurrence: None)
  Receive Date: 20131016
  Receipt Date: 20131016
  Transmission Date: 20140711
  Serious: No
  Sender: FDA-Public Use
  Company Number: None

PATIENT
  Age: 79 None
  Sex: Female
  Weight: 26 kg

DRUGS (4)
  1. FUROSEMIDE [Suspect]
     Indication: CARDIAC FAILURE CONGESTIVE
     Dosage: 40 MG QD N
     Dates: start: 20131013
  2. LISINOPRIL [Suspect]
     Route: 048
  3. ATORVASTATIN [Concomitant]
  4. CARVEDILOL [Concomitant]

REACTIONS (3)
  - Ankle fracture [None]
  - Joint dislocation [None]
  - Dyspnoea [None]
